FAERS Safety Report 21410207 (Version 1)
Quarter: 2022Q4

REPORT INFORMATION
  Report Type: Spontaneous
  Country: US (occurrence: US)
  Receive Date: 20221005
  Receipt Date: 20221005
  Transmission Date: 20230113
  Serious: No
  Sender: FDA-Public Use
  Company Number: US-ALLERGAN-2224945US

PATIENT
  Age: 49 Year
  Sex: Female

DRUGS (2)
  1. UBRELVY [Suspect]
     Active Substance: UBROGEPANT
     Indication: Migraine
     Dosage: ACTUAL: 100 MILLIGRAM/KG/HR, MONTHLY
     Route: 048
     Dates: start: 2020
  2. UBRELVY [Suspect]
     Active Substance: UBROGEPANT
     Dosage: ACTUAL: 50 MG/18 MONTHS
     Route: 048
     Dates: start: 2020

REACTIONS (2)
  - Somnolence [Not Recovered/Not Resolved]
  - Migraine [Not Recovered/Not Resolved]

NARRATIVE: CASE EVENT DATE: 20200101
